FAERS Safety Report 15905943 (Version 1)
Quarter: 2019Q1

REPORT INFORMATION
  Report Type: Report from Study
  Country: US (occurrence: US)
  Receive Date: 20190204
  Receipt Date: 20190204
  Transmission Date: 20190417
  Serious: Yes (Hospitalization)
  Sender: FDA-Public Use
  Company Number: US-EISAI MEDICAL RESEARCH-EC-2018-048460

PATIENT
  Age: 62 Year
  Sex: Male
  Weight: 64 kg

DRUGS (49)
  1. AFINITOR [Suspect]
     Active Substance: EVEROLIMUS
     Route: 048
     Dates: start: 201901, end: 201901
  2. BROMELAIN [Concomitant]
     Active Substance: BROMELAINS
  3. PROBIOTIC [Concomitant]
     Active Substance: PROBIOTICS NOS
  4. TYLENOL [Concomitant]
     Active Substance: ACETAMINOPHEN
  5. OXYCONTIN [Concomitant]
     Active Substance: OXYCODONE HYDROCHLORIDE
  6. OXYCODONE HYDROCHLORIDE. [Concomitant]
     Active Substance: OXYCODONE HYDROCHLORIDE
  7. LENVIMA [Suspect]
     Active Substance: LENVATINIB
     Route: 048
     Dates: start: 201901, end: 201901
  8. CHROMIUM PICOLINATE [Concomitant]
     Active Substance: CHROMIUM PICOLINATE
  9. MULTIVITAMINS [Concomitant]
     Active Substance: VITAMINS
  10. TURMERIC [Concomitant]
     Active Substance: HERBALS\TURMERIC
  11. VITAMIN C [Concomitant]
     Active Substance: ASCORBIC ACID
  12. PANTOPRAZOLE SODIUM. [Concomitant]
     Active Substance: PANTOPRAZOLE SODIUM
  13. DEXAMETHASONE. [Concomitant]
     Active Substance: DEXAMETHASONE
  14. COPPER [Concomitant]
     Active Substance: COPPER
  15. NIACIN. [Concomitant]
     Active Substance: NIACIN
  16. SELENIUM [Concomitant]
     Active Substance: SELENIUM
  17. ZINC. [Concomitant]
     Active Substance: ZINC
  18. AZITHROMYCIN ANHYDROUS. [Concomitant]
     Active Substance: AZITHROMYCIN ANHYDROUS
  19. DOXYCYCLINE HYCLATE. [Concomitant]
     Active Substance: DOXYCYCLINE HYCLATE
  20. PROAIR HFA [Concomitant]
     Active Substance: ALBUTEROL SULFATE
  21. HYDROCORTISONE. [Concomitant]
     Active Substance: HYDROCORTISONE
  22. BACTRIM [Concomitant]
     Active Substance: SULFAMETHOXAZOLE\TRIMETHOPRIM
  23. ALOE VERA [Concomitant]
     Active Substance: ALOE VERA LEAF
  24. IODINE. [Concomitant]
     Active Substance: IODINE
  25. WHITE WILLOW BARK [Concomitant]
  26. CALCIUM CARBONATE. [Concomitant]
     Active Substance: CALCIUM CARBONATE
  27. SODIUM BICARBONATE. [Concomitant]
     Active Substance: SODIUM BICARBONATE
  28. VITAMIN D3 [Concomitant]
     Active Substance: CHOLECALCIFEROL
  29. VITAMIN E [Concomitant]
     Active Substance: .ALPHA.-TOCOPHEROL
  30. LENVIMA [Suspect]
     Active Substance: LENVATINIB
     Route: 048
     Dates: start: 201812, end: 201901
  31. CURCUMIN [Concomitant]
     Active Substance: CURCUMIN
  32. MUCINEX [Concomitant]
     Active Substance: GUAIFENESIN
  33. POTASSIUM BROMIDE [Concomitant]
     Active Substance: POTASSIUM BROMIDE
  34. VITAMIN B COMPLEX [Concomitant]
     Active Substance: CYANOCOBALAMIN\DEXPANTHENOL\NIACINAMIDE\PYRIDOXINE HYDROCHLORIDE\RIBOFLAVIN 5^-PHOSPHATE SODIUM\THIAMINE HYDROCHLORIDE\VITAMIN B COMPLEX
  35. GABAPENTIN. [Concomitant]
     Active Substance: GABAPENTIN
  36. AMOXICILLIN-CLAVULANATE [Concomitant]
     Active Substance: AMOXICILLIN\CLAVULANIC ACID
  37. LENVIMA [Suspect]
     Active Substance: LENVATINIB
     Route: 048
     Dates: start: 201901, end: 201901
  38. AFINITOR [Suspect]
     Active Substance: EVEROLIMUS
     Indication: PRODUCT USED FOR UNKNOWN INDICATION
     Dosage: UNKNOWN
     Route: 048
     Dates: end: 201812
  39. BETA CAROTENE [Concomitant]
  40. MAGNESIUM [Concomitant]
     Active Substance: MAGNESIUM
  41. MIRALAX [Concomitant]
     Active Substance: POLYETHYLENE GLYCOL 3350
  42. SENNA [Concomitant]
     Active Substance: SENNA LEAF\SENNOSIDES\SENNOSIDES A AND B
  43. LENVIMA [Suspect]
     Active Substance: LENVATINIB
     Indication: RENAL CANCER
     Route: 048
     Dates: start: 20181121, end: 201812
  44. ASTAXANTHIN [Concomitant]
  45. BIOTIN [Concomitant]
     Active Substance: BIOTIN
  46. ZYRTEC [Concomitant]
     Active Substance: CETIRIZINE HYDROCHLORIDE
  47. SULFAMETHOXAZOLE-TRIME [Concomitant]
  48. CLOBETASOL [Concomitant]
     Active Substance: CLOBETASOL
  49. PROVENTIL HFA [Concomitant]
     Active Substance: ALBUTEROL SULFATE

REACTIONS (26)
  - Weight decreased [Unknown]
  - Blood lactate dehydrogenase abnormal [Recovered/Resolved]
  - Decreased appetite [Unknown]
  - Dysgeusia [Unknown]
  - Alanine aminotransferase increased [Recovered/Resolved]
  - Blood lactate dehydrogenase increased [Recovered/Resolved]
  - Jaundice [Unknown]
  - Aspartate aminotransferase increased [Recovered/Resolved]
  - Muscular weakness [Unknown]
  - Tongue disorder [Unknown]
  - Diarrhoea [Recovering/Resolving]
  - Hyperkeratosis [Unknown]
  - Glossodynia [Unknown]
  - Hepatic enzyme abnormal [Unknown]
  - Platelet count decreased [Unknown]
  - Wound [Recovered/Resolved]
  - Dyspepsia [Unknown]
  - Muscle atrophy [Unknown]
  - Teeth brittle [Unknown]
  - Back pain [Recovered/Resolved]
  - Pain [Unknown]
  - Epistaxis [Recovered/Resolved]
  - Nasal dryness [Recovered/Resolved]
  - Hypertension [Recovering/Resolving]
  - Vomiting [Unknown]
  - Dental caries [Unknown]

NARRATIVE: CASE EVENT DATE: 2018
